FAERS Safety Report 21062853 (Version 6)
Quarter: 2022Q3

REPORT INFORMATION
  Report Type: Spontaneous
  Country: FR (occurrence: FR)
  Receive Date: 20220711
  Receipt Date: 20220926
  Transmission Date: 20221027
  Serious: Yes (Death, Hospitalization, Other)
  Sender: FDA-Public Use
  Company Number: FR-OTSUKA-2022_033184

PATIENT
  Sex: Male

DRUGS (9)
  1. ARIPIPRAZOLE [Suspect]
     Active Substance: ARIPIPRAZOLE
     Indication: Schizophrenia
     Dosage: 30 MILLIGRAM, ONCE A DAY
     Route: 065
  2. ARIPIPRAZOLE [Suspect]
     Active Substance: ARIPIPRAZOLE
     Dosage: 225 MILLIGRAM, 3 DAYS, (225MG OF ARIPIPRAZOLE DURING THE 3 DAYS BEFORE HIS SUICIDE)
     Route: 065
  3. ARIPIPRAZOLE [Suspect]
     Active Substance: ARIPIPRAZOLE
     Dosage: 15 MILLIGRAM, ONCE A DAY
     Route: 065
  4. ARIPIPRAZOLE [Suspect]
     Active Substance: ARIPIPRAZOLE
     Dosage: 15 MILLIGRAM, MONTHLY
     Route: 065
  5. RISPERIDONE [Suspect]
     Active Substance: RISPERIDONE
     Indication: Schizophrenia
     Dosage: 6 MILLIGRAM, ONCE A DAY, (INITIAL DOSAGE NOT STATED; LATER INCREASED TO 6 MG/DAY)
     Route: 065
  6. RISPERIDONE [Suspect]
     Active Substance: RISPERIDONE
     Dosage: 12 MILLIGRAM, ONCE A DAY
     Route: 065
  7. PALIPERIDONE [Suspect]
     Active Substance: PALIPERIDONE
     Indication: Schizophrenia
     Dosage: 75 MILLIGRAM
     Route: 030
  8. PALIPERIDONE [Suspect]
     Active Substance: PALIPERIDONE
     Dosage: 150 MILLIGRAM EVERY MONTH
     Route: 030
  9. RISPERIDONE [Concomitant]
     Active Substance: RISPERIDONE
     Indication: Schizophrenia
     Dosage: 4 MILLIGRAM, ONCE A DAY
     Route: 065

REACTIONS (13)
  - Completed suicide [Fatal]
  - Anxiety [Fatal]
  - Overdose [Fatal]
  - Concomitant disease aggravated [Recovering/Resolving]
  - Drug interaction [Fatal]
  - Paradoxical drug reaction [Fatal]
  - Psychotic symptom [Fatal]
  - Drug ineffective [Fatal]
  - Symptom recurrence [Fatal]
  - Psychotic disorder [Fatal]
  - Persecutory delusion [Recovering/Resolving]
  - Anxiety disorder [Recovered/Resolved]
  - Delusional perception [Recovered/Resolved]
